FAERS Safety Report 16718840 (Version 2)
Quarter: 2019Q3

REPORT INFORMATION
  Report Type: Report from Study
  Country: US (occurrence: US)
  Receive Date: 20190820
  Receipt Date: 20190827
  Transmission Date: 20191005
  Serious: Yes (Other)
  Sender: FDA-Public Use
  Company Number: US-ROCHE-2257020

PATIENT

DRUGS (3)
  1. CARBOPLATIN. [Suspect]
     Active Substance: CARBOPLATIN
     Indication: NON-SMALL CELL LUNG CANCER
     Route: 042
  2. BEVACIZUMAB. [Suspect]
     Active Substance: BEVACIZUMAB
     Indication: NON-SMALL CELL LUNG CANCER
     Route: 042
  3. PACLITAXEL. [Suspect]
     Active Substance: PACLITAXEL
     Indication: NON-SMALL CELL LUNG CANCER
     Route: 042

REACTIONS (66)
  - Acute myocardial infarction [Unknown]
  - Arterial occlusive disease [Unknown]
  - Rectal haemorrhage [Unknown]
  - Haemoptysis [Unknown]
  - Sinus bradycardia [Unknown]
  - Pulmonary haemorrhage [Unknown]
  - Arrhythmia [Unknown]
  - Right ventricular failure [Unknown]
  - Nephrotic syndrome [Unknown]
  - Haematuria [Unknown]
  - Supraventricular extrasystoles [Unknown]
  - Subgaleal haematoma [Unknown]
  - Proteinuria [Unknown]
  - Neutropenia [Unknown]
  - Anaemia [Unknown]
  - Silent myocardial infarction [Unknown]
  - Cardiac failure [Unknown]
  - Pericarditis [Unknown]
  - Small intestinal perforation [Unknown]
  - Appendicitis perforated [Unknown]
  - Febrile neutropenia [Unknown]
  - Left ventricular hypertrophy [Unknown]
  - Arteriosclerosis coronary artery [Unknown]
  - Subarachnoid haemorrhage [Unknown]
  - Shock haemorrhagic [Unknown]
  - Bradycardia [Unknown]
  - Pneumonia [Unknown]
  - Ventricular extrasystoles [Unknown]
  - Tachycardia [Unknown]
  - Palpitations [Unknown]
  - Hypertension [Unknown]
  - Cardiac arrest [Unknown]
  - Acute coronary syndrome [Unknown]
  - Atrial fibrillation [Unknown]
  - Pulmonary oedema [Unknown]
  - Thrombophlebitis superficial [Unknown]
  - Myocardial infarction [Unknown]
  - Ischaemic stroke [Unknown]
  - Haematemesis [Unknown]
  - Deep vein thrombosis [Unknown]
  - Pulmonary embolism [Unknown]
  - Asthenia [Unknown]
  - Petechiae [Unknown]
  - Paget-Schroetter syndrome [Unknown]
  - Left ventricular dysfunction [Unknown]
  - Blood pressure systolic increased [Unknown]
  - Cardiovascular insufficiency [Unknown]
  - Myocardial ischaemia [Unknown]
  - Cardio-respiratory arrest [Unknown]
  - Hypertensive crisis [Unknown]
  - Pulmonary infarction [Unknown]
  - Subclavian vein thrombosis [Unknown]
  - Peritonitis [Unknown]
  - Disease progression [Unknown]
  - Epistaxis [Unknown]
  - Metabolic cardiomyopathy [Unknown]
  - Ejection fraction decreased [Unknown]
  - Haematochezia [Unknown]
  - Embolism arterial [Unknown]
  - Pericardial effusion [Unknown]
  - Cardiomyopathy [Unknown]
  - Gingival bleeding [Unknown]
  - Cardiac septal hypertrophy [Unknown]
  - Venous thrombosis [Unknown]
  - Supraventricular tachycardia [Unknown]
  - Mitral valve disease [Unknown]
